FAERS Safety Report 9122312 (Version 1)
Quarter: 2013Q1

REPORT INFORMATION
  Report Type: Report from Study
  Country: CA (occurrence: CA)
  Receive Date: 20130227
  Receipt Date: 20130227
  Transmission Date: 20140127
  Serious: Yes (Other)
  Sender: FDA-Public Use
  Company Number: CA-JNJFOC-20130213708

PATIENT
  Sex: Male
  Weight: 84.4 kg

DRUGS (2)
  1. REMICADE [Suspect]
     Indication: ANKYLOSING SPONDYLITIS
     Route: 042
     Dates: start: 20101210
  2. REMICADE [Suspect]
     Indication: CROHN^S DISEASE
     Route: 042
     Dates: start: 20101210

REACTIONS (3)
  - Nasopharyngitis [Recovering/Resolving]
  - Rash [Recovering/Resolving]
  - Vision blurred [Recovered/Resolved]
